FAERS Safety Report 18891647 (Version 1)
Quarter: 2021Q1

REPORT INFORMATION
  Report Type: Spontaneous
  Country: GB (occurrence: GB)
  Receive Date: 20210215
  Receipt Date: 20210215
  Transmission Date: 20210420
  Serious: Yes (Disabling)
  Sender: FDA-Public Use
  Company Number: GB-ACCORD-216986

PATIENT
  Age: 15 Year
  Sex: Female

DRUGS (1)
  1. SERTRALINE [Suspect]
     Active Substance: SERTRALINE HYDROCHLORIDE
     Indication: ANXIETY
     Dosage: 75MG
     Route: 048
     Dates: start: 20200928, end: 20201204

REACTIONS (1)
  - Tourette^s disorder [Not Recovered/Not Resolved]

NARRATIVE: CASE EVENT DATE: 20201127
